FAERS Safety Report 26051194 (Version 2)
Quarter: 2025Q4

REPORT INFORMATION
  Report Type: Report from Study
  Country: US (occurrence: US)
  Receive Date: 20251117
  Receipt Date: 20251125
  Transmission Date: 20260118
  Serious: Yes (Hospitalization, Other)
  Sender: ABBVIE
  Company Number: US-ABBVIE-6544431

PATIENT
  Age: 63 Year
  Sex: Female
  Weight: 118 kg

DRUGS (4)
  1. HUMIRA [Suspect]
     Active Substance: ADALIMUMAB
     Indication: Arthritis
     Route: 058
     Dates: start: 202403, end: 202507
  2. HUMIRA [Suspect]
     Active Substance: ADALIMUMAB
     Indication: Fibromyalgia
  3. HUMIRA [Suspect]
     Active Substance: ADALIMUMAB
     Indication: Hereditary motor and sensory neuropathy
  4. HUMIRA [Suspect]
     Active Substance: ADALIMUMAB
     Indication: Inflammation

REACTIONS (4)
  - Blood sodium decreased [Unknown]
  - Fatigue [Unknown]
  - Diarrhoea [Recovering/Resolving]
  - Rash papular [Unknown]

NARRATIVE: CASE EVENT DATE: 20250101
